FAERS Safety Report 9103515 (Version 1)
Quarter: 2013Q1

REPORT INFORMATION
  Report Type: Spontaneous
  Country: US (occurrence: US)
  Receive Date: 20130218
  Receipt Date: 20130218
  Transmission Date: 20140127
  Serious: Yes (Other)
  Sender: FDA-Public Use
  Company Number: US-GLAXOSMITHKLINE-A1008603A

PATIENT
  Age: 73 Year
  Sex: Male

DRUGS (11)
  1. VOTRIENT [Suspect]
     Indication: RENAL CANCER
     Dosage: 800MG PER DAY
     Route: 048
     Dates: start: 20121004
  2. CRESTOR [Concomitant]
  3. DULERA [Concomitant]
  4. OMEPRAZOLE [Concomitant]
  5. TAMSULOSIN [Concomitant]
  6. ALTACE [Concomitant]
  7. BISOPROLOL + HYDROCHLOROTHIAZIDE [Concomitant]
  8. PLAVIX [Concomitant]
  9. NOVOLOG [Concomitant]
  10. LANTUS [Concomitant]
  11. KETOCONAZOLE [Concomitant]

REACTIONS (5)
  - Bile duct stenosis [Unknown]
  - Bile duct obstruction [Unknown]
  - Jaundice [Unknown]
  - Chromaturia [Unknown]
  - Hepatic lesion [Unknown]
